FAERS Safety Report 21766655 (Version 12)
Quarter: 2023Q4

REPORT INFORMATION
  Report Type: Report from Study
  Country: BR (occurrence: None)
  Receive Date: 20221222
  Receipt Date: 20231002
  Transmission Date: 20240110
  Serious: Yes (Hospitalization)
  Sender: FDA-Public Use
  Company Number: BR-Eisai Medical Research-EC-2022-130558

PATIENT
  Age: 66 Year
  Sex: Male
  Weight: 73.9 kg

DRUGS (14)
  1. LENVATINIB [Suspect]
     Active Substance: LENVATINIB
     Indication: Clear cell renal cell carcinoma
     Dosage: STARTING DOSE AT 20 MG, FLUCTUATED DOSAGE
     Route: 048
     Dates: start: 20220412, end: 20221116
  2. PEMBROLIZUMAB [Suspect]
     Active Substance: PEMBROLIZUMAB
     Indication: Clear cell renal cell carcinoma
     Route: 041
     Dates: start: 20220412, end: 20221006
  3. PEMBROLIZUMAB [Suspect]
     Active Substance: PEMBROLIZUMAB
     Route: 041
     Dates: start: 20230309
  4. BELZUTIFAN [Suspect]
     Active Substance: BELZUTIFAN
     Indication: Clear cell renal cell carcinoma
     Route: 048
     Dates: start: 20220412, end: 20221116
  5. METOCLOPRAMIDE [Concomitant]
     Active Substance: METOCLOPRAMIDE
     Dates: start: 20220412
  6. ATENOLOL [Concomitant]
     Active Substance: ATENOLOL
     Dates: start: 202106
  7. AMLODIPINE [Concomitant]
     Active Substance: AMLODIPINE BESYLATE
     Dates: start: 202101
  8. LOSARTAN [Concomitant]
     Active Substance: LOSARTAN
     Dates: start: 200206, end: 20221220
  9. LOPERAMIDE [Concomitant]
     Active Substance: LOPERAMIDE
     Dates: start: 20220412
  10. CHLORTHALIDONE [Concomitant]
     Active Substance: CHLORTHALIDONE
     Dates: start: 20220524
  11. SIMVASTATIN [Concomitant]
     Active Substance: SIMVASTATIN
     Dates: start: 202101
  12. LEVOTHYROXINE SODIUM [Concomitant]
     Active Substance: LEVOTHYROXINE SODIUM
     Dates: start: 20220616
  13. METFORMIN [Concomitant]
     Active Substance: METFORMIN HYDROCHLORIDE
     Dates: start: 20221027
  14. GLYBURIDE [Concomitant]
     Active Substance: GLYBURIDE
     Dates: start: 20221123, end: 20221216

REACTIONS (1)
  - Lung abscess [Recovered/Resolved]

NARRATIVE: CASE EVENT DATE: 20221214
